FAERS Safety Report 5444228-0 (Version None)
Quarter: 2007Q3

REPORT INFORMATION
  Report Type: 
  Country: None (occurrence: None)
  Receive Date: 20070904
  Receipt Date: 20070904
  Transmission Date: 20080115
  Serious: Yes (Other)
  Sender: FDA-Public Use
  Company Number: None

PATIENT
  Sex: Male

DRUGS (3)
  1. LIPITOR [Suspect]
  2. BETA BLOCKER [Concomitant]
  3. CALCIUM CHANNEL BLOCKER [Concomitant]

REACTIONS (7)
  - DYSPHAGIA [None]
  - DYSPNOEA [None]
  - MUSCLE ATROPHY [None]
  - MUSCLE CONTRACTIONS INVOLUNTARY [None]
  - MUSCULAR DYSTROPHY [None]
  - PAIN IN EXTREMITY [None]
  - WEIGHT DECREASED [None]
